FAERS Safety Report 22979349 (Version 3)
Quarter: 2024Q2

REPORT INFORMATION
  Report Type: Spontaneous
  Country: US (occurrence: US)
  Receive Date: 20230925
  Receipt Date: 20240503
  Transmission Date: 20240716
  Serious: No
  Sender: FDA-Public Use
  Company Number: US-BIOGEN-2023BI01227277

PATIENT
  Age: 41 Year
  Sex: Male

DRUGS (1)
  1. VUMERITY [Suspect]
     Active Substance: DIROXIMEL FUMARATE
     Indication: Multiple sclerosis
     Route: 050
     Dates: start: 20230919

REACTIONS (2)
  - Multiple sclerosis [Unknown]
  - Nervousness [Unknown]

NARRATIVE: CASE EVENT DATE: 20230920
